FAERS Safety Report 8421561-1 (Version None)
Quarter: 2012Q2

REPORT INFORMATION
  Report Type: 
  Country: None (occurrence: None)
  Receive Date: 20120608
  Receipt Date: 20120530
  Transmission Date: 20120825
  Serious: Yes (Other)
  Sender: FDA-Public Use
  Company Number: BR-SANOFI-AVENTIS-2012SA038738

PATIENT
  Age: 85 Year
  Sex: Female
  Weight: 51 kg

DRUGS (9)
  1. LANTUS [Suspect]
     Dosage: START DATE REPORTED AS 20 YEARS AGO, FORM REPORTED AS CARTRIDGE
     Route: 058
     Dates: start: 19920101
  2. CITALOPRAM HYDROBROMIDE [Concomitant]
     Indication: ANTIDEPRESSANT THERAPY
     Route: 048
     Dates: start: 20110101
  3. METOPROLOL SUCCINATE [Concomitant]
     Route: 048
     Dates: start: 20100101
  4. NOVORAPID [Concomitant]
     Dosage: DOSE: ACCORDING TO GLYCEMIA
     Route: 058
     Dates: start: 20110101
  5. AUTOPEN 24 [Suspect]
     Indication: DEVICE THERAPY
  6. METFORMIN HCL [Concomitant]
     Route: 048
     Dates: start: 19920101
  7. PANTOPRAZOLE [Concomitant]
     Indication: ULCER
     Route: 048
     Dates: start: 20110101
  8. OS-CAL D [Concomitant]
     Route: 048
     Dates: start: 20110101
  9. LOSARTAN [Concomitant]
     Indication: BLOOD PRESSURE
     Route: 048

REACTIONS (9)
  - GASTROINTESTINAL CARCINOMA [None]
  - HYPOGLYCAEMIA [None]
  - VISION BLURRED [None]
  - DEMENTIA ALZHEIMER'S TYPE [None]
  - BREAST CANCER [None]
  - FORMICATION [None]
  - HYPERGLYCAEMIA [None]
  - SENSORY LOSS [None]
  - HYPERHIDROSIS [None]
